FAERS Safety Report 7032239-3 (Version None)
Quarter: 2010Q4

REPORT INFORMATION
  Report Type: 
  Country: None (occurrence: None)
  Receive Date: 20101007
  Receipt Date: 20100928
  Transmission Date: 20110411
  Serious: Yes (Hospitalization)
  Sender: FDA-Public Use
  Company Number: US-ASTRAZENECA-2010SE46381

PATIENT
  Age: 79 Year
  Sex: Male

DRUGS (16)
  1. NEXIUM [Suspect]
     Route: 048
     Dates: start: 20100607, end: 20100624
  2. ACTONEL [Concomitant]
     Route: 048
  3. HEXAQUINE [Concomitant]
     Dosage: 1 TO 2 DF PRN PER DAY
     Route: 048
     Dates: end: 20100801
  4. LACTULOSE AEROCID [Concomitant]
     Dosage: PRN
  5. TRAMADOL HCL [Concomitant]
     Dates: end: 20100628
  6. TOPALGIC [Concomitant]
     Dates: start: 20100629
  7. CORTANCYL [Concomitant]
  8. PERINDOPRIL ERBUMINE [Concomitant]
  9. ZOLPIDEM TARTRATE [Concomitant]
  10. ALFUZOSIN HCL [Concomitant]
  11. RIVOTRIL [Concomitant]
     Dosage: 2.5 MG/ML FIVE DROPS IN THE EVENING
  12. CREON [Concomitant]
     Dosage: 25000 U ONE DF THREE TIMES PER DAY
     Route: 048
     Dates: end: 20100702
  13. CACIT D3 [Concomitant]
     Dates: end: 20100702
  14. TRIVASTAL [Concomitant]
     Dates: end: 20100702
  15. NPLATE [Concomitant]
     Route: 058
     Dates: end: 20100628
  16. POLARAMINE [Concomitant]
     Route: 048

REACTIONS (1)
  - AGRANULOCYTOSIS [None]
